FAERS Safety Report 22626523 (Version 2)
Quarter: 2023Q2

REPORT INFORMATION
  Report Type: Spontaneous
  Country: ES (occurrence: ES)
  Receive Date: 20230621
  Receipt Date: 20230629
  Transmission Date: 20230721
  Serious: Yes (Other)
  Sender: FDA-Public Use
  Company Number: ES-ABBVIE-5295542

PATIENT
  Age: 52 Year
  Sex: Male

DRUGS (20)
  1. HYDROCORTISONE [Suspect]
     Active Substance: HYDROCORTISONE
     Indication: Benign familial pemphigus
     Route: 065
  2. MINOCYCLINE [Suspect]
     Active Substance: MINOCYCLINE HYDROCHLORIDE
     Indication: Benign familial pemphigus
     Route: 065
  3. MINOCYCLINE [Suspect]
     Active Substance: MINOCYCLINE HYDROCHLORIDE
  4. DAPSONE [Suspect]
     Active Substance: DAPSONE
     Indication: Benign familial pemphigus
     Route: 065
  5. ACITRETIN [Suspect]
     Active Substance: ACITRETIN
     Indication: Benign familial pemphigus
     Route: 065
  6. PREDNISONE [Suspect]
     Active Substance: PREDNISONE
     Indication: Benign familial pemphigus
     Route: 065
  7. METHOTREXATE [Suspect]
     Active Substance: METHOTREXATE
     Indication: Benign familial pemphigus
     Route: 065
  8. MYCOPHENOLATE MOFETIL [Suspect]
     Active Substance: MYCOPHENOLATE MOFETIL
     Indication: Benign familial pemphigus
     Route: 065
  9. CYCLOSPORINE [Suspect]
     Active Substance: CYCLOSPORINE
     Indication: Benign familial pemphigus
     Route: 065
  10. HYDROXYCHLOROQUINE [Suspect]
     Active Substance: HYDROXYCHLOROQUINE
     Indication: Benign familial pemphigus
     Route: 065
  11. NALTREXONE [Suspect]
     Active Substance: NALTREXONE
     Indication: Benign familial pemphigus
     Dosage: LOW DOSE
     Route: 065
  12. APREMILAST [Suspect]
     Active Substance: APREMILAST
     Indication: Benign familial pemphigus
     Route: 065
  13. FLUCONAZOLE [Suspect]
     Active Substance: FLUCONAZOLE
     Indication: Benign familial pemphigus
     Route: 065
  14. OXYBUTYNIN [Suspect]
     Active Substance: OXYBUTYNIN
     Indication: Benign familial pemphigus
     Route: 065
  15. OXYBUTYNIN [Suspect]
     Active Substance: OXYBUTYNIN
     Dosage: 5 MILLIGRAM DAILY; WITH DUPILUMAB, EVERY 1 DAYS
     Route: 065
  16. TACROLIMUS [Suspect]
     Active Substance: TACROLIMUS
     Indication: Benign familial pemphigus
     Route: 065
  17. FUSIDIC ACID [Suspect]
     Active Substance: FUSIDIC ACID
     Indication: Benign familial pemphigus
     Route: 061
  18. DOXYCYCLINE [Suspect]
     Active Substance: DOXYCYCLINE
     Indication: Benign familial pemphigus
     Route: 065
  19. DUPILUMAB [Suspect]
     Active Substance: DUPILUMAB
     Indication: Benign familial pemphigus
     Dosage: 600 MG LOADING DOSE
     Route: 058
  20. DUPILUMAB [Suspect]
     Active Substance: DUPILUMAB
     Dosage: FOLLOWED BY 300 MG EVERY 14 DAYS
     Route: 058

REACTIONS (1)
  - Therapy partial responder [Unknown]
